FAERS Safety Report 5467310-0 (Version None)
Quarter: 2007Q3

REPORT INFORMATION
  Report Type: 
  Country: None (occurrence: None)
  Receive Date: 20070925
  Receipt Date: 20070917
  Transmission Date: 20080115
  Serious: Yes (Other)
  Sender: FDA-Public Use
  Company Number: US-PFIZER INC-2006092813

PATIENT
  Sex: Male
  Weight: 95.3 kg

DRUGS (11)
  1. NEURONTIN [Suspect]
     Indication: INJURY
     Dosage: DAILY DOSE:2400MG
  2. NEURONTIN [Suspect]
     Indication: HEAD INJURY
  3. NEURONTIN [Suspect]
     Indication: EPILEPSY
  4. NEURONTIN [Suspect]
     Indication: PAIN
  5. NEURONTIN [Suspect]
     Indication: BIPOLAR DISORDER
  6. LYRICA [Suspect]
     Indication: PAIN
     Route: 048
     Dates: start: 20060101, end: 20070101
  7. DIAZEPAM [Concomitant]
  8. RISPERDAL [Concomitant]
  9. MORPHINE SULFATE [Concomitant]
  10. MORPHINE [Concomitant]
  11. PREVACID [Concomitant]

REACTIONS (11)
  - ABDOMINAL PAIN UPPER [None]
  - ARTHRALGIA [None]
  - BACK PAIN [None]
  - BLEPHARITIS [None]
  - DEPRESSION [None]
  - FLATULENCE [None]
  - HORDEOLUM [None]
  - INTERVERTEBRAL DISC DISORDER [None]
  - JOINT SWELLING [None]
  - SUICIDAL IDEATION [None]
  - SUICIDE ATTEMPT [None]
